FAERS Safety Report 13117086 (Version 2)
Quarter: 2017Q1

REPORT INFORMATION
  Report Type: Spontaneous
  Country: DE (occurrence: DE)
  Receive Date: 20170116
  Receipt Date: 20170126
  Transmission Date: 20170428
  Serious: Yes (Death, Hospitalization)
  Sender: FDA-Public Use
  Company Number: DE-CONCORDIA PHARMACEUTICALS INC.-E2B_00007976

PATIENT
  Age: 58 Year
  Sex: Female

DRUGS (7)
  1. TORSEMIDE. [Concomitant]
     Active Substance: TORSEMIDE
  2. ILOPROST [Concomitant]
     Active Substance: ILOPROST
     Indication: PRODUCT USED FOR UNKNOWN INDICATION
  3. CARVEDILOL. [Concomitant]
     Active Substance: CARVEDILOL
  4. SILDENAFIL. [Concomitant]
     Active Substance: SILDENAFIL
     Indication: PRODUCT USED FOR UNKNOWN INDICATION
  5. RAMIPRIL. [Concomitant]
     Active Substance: RAMIPRIL
  6. SPIRONOLACTONE. [Concomitant]
     Active Substance: SPIRONOLACTONE
  7. HYDROXYCHLOROQUINE [Suspect]
     Active Substance: HYDROXYCHLOROQUINE
     Indication: SYSTEMIC SCLERODERMA
     Route: 065

REACTIONS (12)
  - N-terminal prohormone brain natriuretic peptide increased [Unknown]
  - Ejection fraction decreased [Unknown]
  - Peripheral swelling [Unknown]
  - Cardiogenic shock [Fatal]
  - Fibrosis [Unknown]
  - Cardiomyopathy [Unknown]
  - Dyspnoea [Unknown]
  - Cardiac failure [Unknown]
  - Renal impairment [Unknown]
  - Left ventricular hypertrophy [Unknown]
  - Left ventricular end-diastolic pressure increased [Unknown]
  - Hypotension [Unknown]
